FAERS Safety Report 25834892 (Version 2)
Quarter: 2025Q4

REPORT INFORMATION
  Report Type: Spontaneous
  Country: CA (occurrence: CA)
  Receive Date: 20250923
  Receipt Date: 20251020
  Transmission Date: 20260117
  Serious: Yes (Hospitalization, Other)
  Sender: EXELIXIS
  Company Number: CA-IPSEN Group, Research and Development-2025-22880

PATIENT
  Age: 42 Year
  Sex: Female
  Weight: 67 kg

DRUGS (9)
  1. CABOMETYX [Suspect]
     Active Substance: CABOZANTINIB S-MALATE
     Indication: Clear cell renal cell carcinoma
     Dosage: 40 MG, QD
     Route: 048
     Dates: start: 202503
  2. ACETAMINOPHEN [Concomitant]
     Active Substance: ACETAMINOPHEN
     Dosage: 1000 Q6HR PRN
  3. BACLOFEN [Concomitant]
     Active Substance: BACLOFEN
     Dosage: 5 MG PO BID PRN
     Route: 048
  4. CYCLOBENZAPRINE [Concomitant]
     Active Substance: CYCLOBENZAPRINE
     Dosage: 10 MG HS PRN
  5. DENOSUMAB [Concomitant]
     Active Substance: DENOSUMAB
     Dosage: 120 MG S/C Q4WEEKS
     Route: 058
  6. LEVOTHYROXINE [Concomitant]
     Active Substance: LEVOTHYROXINE
     Dosage: 75MCG OD
  7. DEXLANSOPRAZOLE [Concomitant]
     Active Substance: DEXLANSOPRAZOLE
     Dosage: DELAYED RELEASE, 60 MG PO OD
     Route: 048
  8. PREGABALIN [Concomitant]
     Active Substance: PREGABALIN
     Dosage: 50 MG BID
  9. SKYRIZI [Concomitant]
     Active Substance: RISANKIZUMAB-RZAA
     Dosage: PRE-FILLED SYRINGE, 150 MG Q12WEEKS SOLUTION FOR SUBCUTANEOUS
     Route: 058

REACTIONS (10)
  - Gastrointestinal inflammation [Recovered/Resolved]
  - Effusion [Recovered/Resolved]
  - Intestinal ulcer [Recovered/Resolved]
  - Intussusception [Recovered/Resolved]
  - Lymphadenopathy [Recovered/Resolved]
  - Abdominal discomfort [Recovered/Resolved]
  - Small intestinal perforation [Recovered/Resolved]
  - Abdominal pain [Recovered/Resolved]
  - Small intestinal perforation [Recovered/Resolved]
  - Off label use [Unknown]

NARRATIVE: CASE EVENT DATE: 20250509
